FAERS Safety Report 7921195-9 (Version None)
Quarter: 2011Q4

REPORT INFORMATION
  Report Type: 
  Country: None (occurrence: None)
  Receive Date: 20111117
  Receipt Date: 20111107
  Transmission Date: 20120403
  Serious: Yes (Other)
  Sender: FDA-Public Use
  Company Number: US-BAYER-2011-081821

PATIENT
  Age: 29 Year
  Sex: Female
  Weight: 56.689 kg

DRUGS (5)
  1. ZYRTEC [Concomitant]
     Indication: MULTIPLE ALLERGIES
  2. MELOXICAM [Concomitant]
     Indication: ARTHRALGIA
     Dosage: UNK
     Dates: start: 20100715
  3. DROSPIRENONE AND ETHINYL ESTRADIOL [Suspect]
     Indication: CONTRACEPTION
     Dosage: UNK
     Dates: start: 20090630, end: 20100727
  4. ONDANSETRON [Concomitant]
     Dosage: 4 MG, UNK
     Dates: start: 20100414
  5. APAP W/ CODEINE [Concomitant]
     Indication: ARTHRALGIA
     Dosage: UNK
     Dates: start: 20100723

REACTIONS (3)
  - PAIN [None]
  - INJURY [None]
  - THROMBOPHLEBITIS SUPERFICIAL [None]
